FAERS Safety Report 8520871-7 (Version None)
Quarter: 2012Q3

REPORT INFORMATION
  Report Type: 
  Country: None (occurrence: None)
  Receive Date: 20120719
  Receipt Date: 20120713
  Transmission Date: 20120928
  Serious: Yes (Other)
  Sender: FDA-Public Use
  Company Number: FR-ABBOTT-12P-056-0952526-00

PATIENT
  Sex: Female

DRUGS (4)
  1. REYATAZ [Concomitant]
     Indication: HIV INFECTION
     Dates: start: 20120117
  2. LEVOTHYROXINE SODIUM [Interacting]
     Indication: PRODUCT USED FOR UNKNOWN INDICATION
     Route: 048
     Dates: start: 20110101
  3. TRUVADA [Concomitant]
     Indication: HIV INFECTION
  4. NORVIR [Suspect]
     Indication: HIV INFECTION
     Route: 048
     Dates: start: 20120117

REACTIONS (2)
  - THYROID DISORDER [None]
  - BLOOD THYROID STIMULATING HORMONE DECREASED [None]
